FAERS Safety Report 17549785 (Version 1)
Quarter: 2020Q1

REPORT INFORMATION
  Report Type: Spontaneous
  Country: US (occurrence: US)
  Receive Date: 20200316
  Receipt Date: 20200316
  Transmission Date: 20200409
  Serious: Yes (Disabling)
  Sender: FDA-Public Use
  Company Number: None

PATIENT
  Age: 39 Year
  Sex: Female
  Weight: 73.8 kg

DRUGS (6)
  1. PROSAZIN [Concomitant]
  2. L-METHYLFOLATE [Concomitant]
     Active Substance: LEVOMEFOLIC ACID
  3. CITALOPRAM [Suspect]
     Active Substance: CITALOPRAM HYDROBROMIDE
     Indication: DEPRESSION
     Route: 048
     Dates: start: 20180531
  4. LAMICTAL [Concomitant]
     Active Substance: LAMOTRIGINE
  5. TYLENOL [Concomitant]
     Active Substance: ACETAMINOPHEN
  6. PROTONIX [Concomitant]
     Active Substance: PANTOPRAZOLE SODIUM

REACTIONS (7)
  - Vision blurred [None]
  - Misophonia [None]
  - Panic reaction [None]
  - Hyperresponsive to stimuli [None]
  - Head discomfort [None]
  - Hyperacusis [None]
  - Tremor [None]

NARRATIVE: CASE EVENT DATE: 20200316
